FAERS Safety Report 11336290 (Version 1)
Quarter: 2015Q3

REPORT INFORMATION
  Report Type: Spontaneous
  Country: US (occurrence: None)
  Receive Date: 20150731
  Receipt Date: 20150731
  Transmission Date: 20151125
  Serious: Yes (Life-Threatening, Hospitalization)
  Sender: FDA-Public Use
  Company Number: None

PATIENT
  Age: 64 Year
  Sex: Male
  Weight: 112.6 kg

DRUGS (1)
  1. MIDAZOLAM [Suspect]
     Active Substance: MIDAZOLAM\MIDAZOLAM HYDROCHLORIDE
     Indication: ECHOCARDIOGRAM
     Route: 042
     Dates: start: 20120410, end: 20120410

REACTIONS (2)
  - Respiratory depression [None]
  - Agitation [None]

NARRATIVE: CASE EVENT DATE: 20120410
